FAERS Safety Report 18258886 (Version 3)
Quarter: 2021Q1

REPORT INFORMATION
  Report Type: Report from Study
  Country: JP (occurrence: JP)
  Receive Date: 20200911
  Receipt Date: 20210222
  Transmission Date: 20210419
  Serious: Yes (Hospitalization)
  Sender: FDA-Public Use
  Company Number: JP-EISAI MEDICAL RESEARCH-EC-2020-080351

PATIENT
  Age: 43 Year
  Sex: Male
  Weight: 74 kg

DRUGS (9)
  1. ERIBULIN [Suspect]
     Active Substance: ERIBULIN
     Route: 041
     Dates: start: 20201126, end: 20210127
  2. NIVOLUMAB [Suspect]
     Active Substance: NIVOLUMAB
     Indication: MALIGNANT NEOPLASM OF THYMUS
     Route: 041
     Dates: start: 20200326, end: 20200826
  3. REFLEX [Concomitant]
     Active Substance: MIRTAZAPINE
     Indication: INSOMNIA
     Route: 048
     Dates: start: 20200729
  4. DICLOFENAC SODIUM. [Concomitant]
     Active Substance: DICLOFENAC SODIUM
     Route: 048
     Dates: start: 20200729
  5. ERIBULIN [Suspect]
     Active Substance: ERIBULIN
     Indication: MALIGNANT NEOPLASM OF THYMUS
     Route: 041
     Dates: start: 20200326, end: 20200826
  6. LANSOPRAZOLE. [Concomitant]
     Active Substance: LANSOPRAZOLE
     Indication: CHRONIC GASTRITIS
     Route: 048
     Dates: start: 20200324
  7. LYRICA [Concomitant]
     Active Substance: PREGABALIN
     Indication: TUMOUR PAIN
     Route: 048
     Dates: start: 20200713
  8. TAPENTA [Concomitant]
     Active Substance: TAPENTADOL HYDROCHLORIDE
     Indication: TUMOUR PAIN
     Route: 048
     Dates: start: 20200729
  9. OXINORM [Concomitant]
     Indication: TUMOUR PAIN
     Route: 047
     Dates: start: 20200713

REACTIONS (1)
  - Enterocolitis [Recovering/Resolving]

NARRATIVE: CASE EVENT DATE: 20200904
